FAERS Safety Report 4911871-4 (Version None)
Quarter: 2006Q1

REPORT INFORMATION
  Report Type: 
  Country: None (occurrence: None)
  Receive Date: 20060215
  Receipt Date: 20060201
  Transmission Date: 20060701
  Serious: Yes (Hospitalization)
  Sender: FDA-Public Use
  Company Number: TW-JNJFOC-20060105890

PATIENT
  Age: 45 Year
  Sex: Female

DRUGS (5)
  1. CAELYX [Suspect]
     Route: 042
  2. CAELYX [Suspect]
     Route: 042
  3. CAELYX [Suspect]
     Indication: BREAST CANCER
     Route: 042
  4. ENDOXAN [Concomitant]
  5. FLUOROURACIL [Concomitant]

REACTIONS (4)
  - BLOOD BILIRUBIN INCREASED [None]
  - COMA [None]
  - TRANSAMINASES INCREASED [None]
  - WHITE BLOOD CELL COUNT DECREASED [None]
